FAERS Safety Report 6662809-3 (Version None)
Quarter: 2010Q2

REPORT INFORMATION
  Report Type: 
  Country: None (occurrence: None)
  Receive Date: 20100401
  Receipt Date: 20100323
  Transmission Date: 20101027
  Serious: No
  Sender: FDA-Public Use
  Company Number: US-BIOGENIDEC-2010BI009907

PATIENT
  Sex: Female

DRUGS (3)
  1. AVONEX [Suspect]
     Indication: MULTIPLE SCLEROSIS
     Route: 030
     Dates: start: 20010801, end: 20081017
  2. AVONEX [Suspect]
     Route: 030
     Dates: start: 20090101, end: 20090130
  3. AVONEX [Suspect]
     Route: 030
     Dates: start: 20090201

REACTIONS (6)
  - ASTHENIA [None]
  - FEAR OF NEEDLES [None]
  - GENERAL SYMPTOM [None]
  - GLUCOSE TOLERANCE IMPAIRED [None]
  - MULTIPLE SCLEROSIS RELAPSE [None]
  - PARAESTHESIA [None]
